FAERS Safety Report 17370776 (Version 3)
Quarter: 2020Q1

REPORT INFORMATION
  Report Type: Report from Study
  Country: KR (occurrence: KR)
  Receive Date: 20200205
  Receipt Date: 20200313
  Transmission Date: 20200409
  Serious: Yes (Life-Threatening, Hospitalization)
  Sender: FDA-Public Use
  Company Number: KR-CELLTRION INC.-2019KR019649

PATIENT

DRUGS (18)
  1. BESZYME [Concomitant]
     Indication: DYSPEPSIA
     Dosage: 1 DOSAGE FORM, TID
     Route: 048
     Dates: start: 20200124
  2. RIFAMPICIN [Concomitant]
     Active Substance: RIFAMPIN
     Indication: ACID FAST BACILLI INFECTION
     Dosage: 600 MG, TID
     Route: 048
     Dates: start: 20200124
  3. HERZUMA [Suspect]
     Active Substance: TRASTUZUMAB-PKRB
     Dosage: 422.8 MG CYCLE 12
     Route: 042
     Dates: start: 20190805, end: 20190805
  4. FAMOTIDINE. [Concomitant]
     Active Substance: FAMOTIDINE
     Dosage: 20 MG, BID
     Route: 042
     Dates: start: 20190605, end: 20190606
  5. HERZUMA [Suspect]
     Active Substance: TRASTUZUMAB-PKRB
     Dosage: UNK
     Route: 042
     Dates: start: 20181218, end: 20190311
  6. HERZUMA [Suspect]
     Active Substance: TRASTUZUMAB-PKRB
     Dosage: CYCLE 17
     Dates: start: 20191118
  7. TAPENTADOL [Concomitant]
     Active Substance: TAPENTADOL
     Indication: ANALGESIC THERAPY
     Dosage: 100 MG, BID
     Route: 048
     Dates: start: 20200124
  8. HERZUMA [Suspect]
     Active Substance: TRASTUZUMAB-PKRB
     Indication: SALIVARY GLAND NEOPLASM
     Dosage: CYCLE 1
     Dates: start: 20181201, end: 20190805
  9. HERZUMA [Suspect]
     Active Substance: TRASTUZUMAB-PKRB
     Dosage: CYCLE 16
     Dates: start: 20191018
  10. NANOXEL [Suspect]
     Active Substance: PACLITAXEL
     Dosage: UNK
     Route: 042
     Dates: start: 20191230
  11. DOCETAXEL. [Suspect]
     Active Substance: DOCETAXEL
     Dosage: 142.5 MG
  12. HERZUMA [Suspect]
     Active Substance: TRASTUZUMAB-PKRB
     Dosage: CYCLE 21
     Route: 042
     Dates: start: 20200224, end: 20200224
  13. NANOXEL [Suspect]
     Active Substance: PACLITAXEL
     Indication: SALIVARY GLAND NEOPLASM
     Dosage: UNK
     Route: 042
     Dates: start: 20191218
  14. FAMOTIDINE. [Concomitant]
     Active Substance: FAMOTIDINE
     Indication: PEPTIC ULCER
     Dosage: 20 MG, BID
     Route: 042
     Dates: start: 20190526, end: 20190527
  15. FAMOTIDINE. [Concomitant]
     Active Substance: FAMOTIDINE
     Dosage: 20 MG, BID
     Route: 042
     Dates: start: 20190713, end: 20190715
  16. HERZUMA [Suspect]
     Active Substance: TRASTUZUMAB-PKRB
     Dosage: UNK, CYCLIC
     Dates: start: 20191230
  17. HERZUMA [Suspect]
     Active Substance: TRASTUZUMAB-PKRB
     Dosage: 442.8 MG
     Dates: start: 20190311
  18. FAMOTIDINE. [Concomitant]
     Active Substance: FAMOTIDINE
     Dosage: 20 MG, BID
     Route: 042
     Dates: start: 20191101, end: 20191102

REACTIONS (6)
  - Ileus [Recovered/Resolved]
  - Febrile neutropenia [Recovered/Resolved]
  - Mechanical ileus [Recovered/Resolved]
  - Pyrexia [Recovered/Resolved]
  - Off label use [Unknown]
  - Neutropenia [Recovered/Resolved]

NARRATIVE: CASE EVENT DATE: 20190322
